FAERS Safety Report 8011149-9 (Version None)
Quarter: 2011Q4

REPORT INFORMATION
  Report Type: 
  Country: None (occurrence: None)
  Receive Date: 20111228
  Receipt Date: 20111221
  Transmission Date: 20120403
  Serious: Yes (Other)
  Sender: FDA-Public Use
  Company Number: US-ROCHE-803729

PATIENT
  Sex: Female
  Weight: 58.566 kg

DRUGS (1)
  1. ACCUTANE [Suspect]
     Indication: ACNE CYSTIC
     Route: 065
     Dates: start: 19900101, end: 19930101

REACTIONS (5)
  - MENSTRUAL DISORDER [None]
  - DRY SKIN [None]
  - INFLAMMATORY BOWEL DISEASE [None]
  - DRY EYE [None]
  - ONYCHOCLASIS [None]
